FAERS Safety Report 4809247-3 (Version None)
Quarter: 2005Q4

REPORT INFORMATION
  Report Type: 
  Country: None (occurrence: None)
  Receive Date: 20051021
  Receipt Date: 20030929
  Transmission Date: 20060501
  Serious: Yes (Hospitalization, Other)
  Sender: FDA-Public Use
  Company Number: GBS031013800

PATIENT
  Age: 55 Year
  Sex: Male

DRUGS (1)
  1. OLANZAPINE [Suspect]
     Indication: BIPOLAR DISORDER
     Dates: start: 20010101, end: 20030910

REACTIONS (8)
  - CONVULSION [None]
  - HYPERTENSION [None]
  - HYPOTHYROIDISM [None]
  - MANIA [None]
  - MEDICAL DEVICE COMPLICATION [None]
  - NEUROLEPTIC MALIGNANT SYNDROME [None]
  - PROTEINURIA [None]
  - WHITE BLOOD CELL COUNT INCREASED [None]
